FAERS Safety Report 21099525 (Version 1)
Quarter: 2022Q3

REPORT INFORMATION
  Report Type: Spontaneous
  Country: NL (occurrence: None)
  Receive Date: 20220719
  Receipt Date: 20220719
  Transmission Date: 20221027
  Serious: Yes (Hospitalization)
  Sender: FDA-Public Use
  Company Number: NL-ROCHE-3132787

PATIENT
  Age: 69 Year
  Sex: Male
  Weight: 76 kg

DRUGS (7)
  1. PEGASYS [Suspect]
     Active Substance: PEGINTERFERON ALFA-2A
     Indication: Polycythaemia
     Dosage: FORM STRENGTH: 270 MCG/ML
     Route: 065
     Dates: start: 20220509
  2. PERINDOPRIL [Concomitant]
     Active Substance: PERINDOPRIL
  3. VALACYCLOVIR HYDROCHLORIDE [Concomitant]
     Active Substance: VALACYCLOVIR HYDROCHLORIDE
  4. TIMOLOL [Concomitant]
     Active Substance: TIMOLOL
     Dosage: DOSE: 5/20 MG/ML
  5. PREDNISOLONE [Concomitant]
     Active Substance: PREDNISOLONE
     Dosage: DOSE: 10 MG/ML
  6. CARBASPIRIN CALCIUM [Concomitant]
     Active Substance: CARBASPIRIN CALCIUM
  7. MINOCYCLINE [Concomitant]
     Active Substance: MINOCYCLINE HYDROCHLORIDE

REACTIONS (6)
  - Ear discomfort [Recovering/Resolving]
  - Meniere^s disease [Recovering/Resolving]
  - Vertigo [Recovering/Resolving]
  - Tinnitus [Recovering/Resolving]
  - Vestibulitis [Recovering/Resolving]
  - Off label use [Unknown]

NARRATIVE: CASE EVENT DATE: 20220510
